FAERS Safety Report 6595528-2 (Version None)
Quarter: 2010Q1

REPORT INFORMATION
  Report Type: 
  Country: None (occurrence: None)
  Receive Date: 20100222
  Receipt Date: 20100222
  Transmission Date: 20100710
  Serious: Yes (Life-Threatening)
  Sender: FDA-Public Use
  Company Number: None

PATIENT
  Age: 74 Year
  Sex: Female
  Weight: 61.2356 kg

DRUGS (2)
  1. FENTANYL [Suspect]
     Indication: EYE PAIN
     Dosage: TWICE WITHIN 10 MI IV
     Route: 042
     Dates: start: 20090816, end: 20090816
  2. FENTANYL [Suspect]
     Indication: PROCEDURAL PAIN
     Dosage: TWICE WITHIN 10 MI IV
     Route: 042
     Dates: start: 20090816, end: 20090816

REACTIONS (8)
  - APHASIA [None]
  - DIZZINESS [None]
  - GAIT DISTURBANCE [None]
  - HEADACHE [None]
  - LETHARGY [None]
  - MEDICATION ERROR [None]
  - RESPIRATION ABNORMAL [None]
  - VISUAL ACUITY REDUCED [None]
